FAERS Safety Report 20225318 (Version 2)
Quarter: 2022Q1

REPORT INFORMATION
  Report Type: Report from Study
  Country: DE (occurrence: None)
  Receive Date: 20211224
  Receipt Date: 20220106
  Transmission Date: 20220423
  Serious: Yes (Other)
  Sender: FDA-Public Use
  Company Number: DE-ROCHE-2981175

PATIENT
  Sex: Female
  Weight: 53 kg

DRUGS (3)
  1. ATEZOLIZUMAB [Suspect]
     Active Substance: ATEZOLIZUMAB
     Indication: Ovarian cancer recurrent
     Dosage: DATE OF LAST DOSE PRIOR TO SAE 29/NOV/2021
     Route: 042
     Dates: start: 20210630, end: 20211206
  2. BEVACIZUMAB [Suspect]
     Active Substance: BEVACIZUMAB
     Indication: Ovarian cancer recurrent
     Dosage: DATE OF LAST DOSE PRIOR TO SAE 29/NOV/2021
     Route: 042
     Dates: start: 20210630, end: 20211206
  3. PACLITAXEL [Suspect]
     Active Substance: PACLITAXEL
     Indication: Ovarian cancer recurrent
     Dosage: D1, 8, 14, 22 Q28?DATE OF LAST DOSE PRIOR TO SAE 29/NOV/2021
     Route: 042
     Dates: start: 20210630, end: 20211206

REACTIONS (1)
  - COVID-19 [Recovered/Resolved]

NARRATIVE: CASE EVENT DATE: 20211203
